FAERS Safety Report 4432360-X (Version None)
Quarter: 2004Q3

REPORT INFORMATION
  Report Type: 
  Country: None (occurrence: None)
  Receive Date: 20040818
  Receipt Date: 20040803
  Transmission Date: 20050211
  Serious: Yes (Other)
  Sender: FDA-Public Use
  Company Number: A03200402603

PATIENT

DRUGS (1)
  1. PLAQUENIL - HYDROXYCHLORQUINE SULFATE- [Suspect]

REACTIONS (1)
  - CARDIAC FAILURE CONGESTIVE [None]
